FAERS Safety Report 8388665-3 (Version None)
Quarter: 2012Q2

REPORT INFORMATION
  Report Type: 
  Country: None (occurrence: None)
  Receive Date: 20120525
  Receipt Date: 20120518
  Transmission Date: 20120825
  Serious: Yes (Hospitalization, Disabling)
  Sender: FDA-Public Use
  Company Number: US-RB-040615-12

PATIENT
  Age: 37 Year
  Sex: Male

DRUGS (1)
  1. SUBOXONE [Suspect]
     Indication: PRODUCT USED FOR UNKNOWN INDICATION
     Dosage: UNKNOWN DOSAGE DETAILS
     Route: 065

REACTIONS (12)
  - INJURY [None]
  - HEADACHE [None]
  - ANXIETY [None]
  - DRUG WITHDRAWAL SYNDROME [None]
  - AMNESIA [None]
  - IMPAIRED WORK ABILITY [None]
  - BALANCE DISORDER [None]
  - COMA [None]
  - DEPRESSION [None]
  - ACTIVITIES OF DAILY LIVING IMPAIRED [None]
  - HYPERTENSION [None]
  - ROAD TRAFFIC ACCIDENT [None]
